FAERS Safety Report 14971766 (Version 2)
Quarter: 2018Q2

REPORT INFORMATION
  Report Type: Spontaneous
  Country: DE (occurrence: DE)
  Receive Date: 20180605
  Receipt Date: 20180621
  Transmission Date: 20180711
  Serious: Yes (Disabling, Other)
  Sender: FDA-Public Use
  Company Number: DE-UCBSA-2018023757

PATIENT
  Sex: Female
  Weight: 60 kg

DRUGS (1)
  1. VIMPAT [Suspect]
     Active Substance: LACOSAMIDE
     Indication: PROPHYLAXIS
     Dosage: 50 MG, 2X/DAY (BID)
     Dates: start: 2017, end: 20180518

REACTIONS (1)
  - Organic brain syndrome [Recovered/Resolved]

NARRATIVE: CASE EVENT DATE: 2018
